FAERS Safety Report 7226297-0 (Version None)
Quarter: 2011Q1

REPORT INFORMATION
  Report Type: 
  Country: None (occurrence: None)
  Receive Date: 20110114
  Receipt Date: 20110106
  Transmission Date: 20110831
  Serious: Yes (Other)
  Sender: FDA-Public Use
  Company Number: PHHY2011CH01279

PATIENT
  Sex: Female

DRUGS (7)
  1. PREDNISONE [Suspect]
     Dosage: 1 DF, AS NECESSARY
     Route: 048
     Dates: start: 20100413
  2. DIAMICRON [Concomitant]
     Dosage: 10 MG, UNK
     Route: 048
  3. SANDIMMUNE [Suspect]
     Indication: LIVER TRANSPLANT
     Dosage: 100 MG, UNK
     Route: 048
     Dates: start: 20100414, end: 20100823
  4. JANUVIA [Concomitant]
     Dosage: 50 MG, UNK
     Route: 048
  5. VALCYTE [Concomitant]
     Dosage: 1 DF, UNK
     Dates: start: 20100413, end: 20100829
  6. SULFAMETHOXAZOLE AND TRIMETHOPRIM [Concomitant]
     Dosage: 0.5 MG, UNK
     Dates: start: 20100413
  7. NEXIUM [Concomitant]
     Dosage: UNK
     Dates: start: 20100413

REACTIONS (2)
  - HYPERTRIGLYCERIDAEMIA [None]
  - HYPERCHOLESTEROLAEMIA [None]
